FAERS Safety Report 5615425-6 (Version None)
Quarter: 2008Q1

REPORT INFORMATION
  Report Type: 
  Country: None (occurrence: None)
  Receive Date: 20080206
  Receipt Date: 20080131
  Transmission Date: 20080703
  Serious: Yes (Hospitalization, Other)
  Sender: FDA-Public Use
  Company Number: AU-AVENTIS-200811135GDDC

PATIENT
  Age: 62 Year
  Sex: Female

DRUGS (5)
  1. LANTUS [Suspect]
     Route: 058
     Dates: start: 20071009
  2. DIABEX [Concomitant]
  3. DIGOXIN [Concomitant]
  4. PRAVACHOL [Concomitant]
  5. AMARYL [Concomitant]

REACTIONS (1)
  - CORONARY ARTERY OCCLUSION [None]
